FAERS Safety Report 8221893-6 (Version None)
Quarter: 2012Q1

REPORT INFORMATION
  Report Type: 
  Country: None (occurrence: None)
  Receive Date: 20120320
  Receipt Date: 20120309
  Transmission Date: 20120608
  Serious: Yes (Hospitalization)
  Sender: FDA-Public Use
  Company Number: CA-JNJFOC-20111201405

PATIENT
  Sex: Male
  Weight: 67 kg

DRUGS (10)
  1. REMICADE [Suspect]
     Indication: CROHN'S DISEASE
     Route: 042
     Dates: start: 20100122
  2. MULTIPLE VITAMIN [Concomitant]
     Route: 065
  3. IMODIUM [Concomitant]
     Route: 065
  4. VIMOVO [Concomitant]
     Dosage: 500/20 TWO TIMES AS NECESSARY
     Route: 065
  5. TYLENOL W/ CODEINE NO. 3 [Concomitant]
     Indication: PAIN
     Route: 065
  6. VITAMIN D [Concomitant]
     Dosage: 1000 UNIT
     Route: 065
  7. IMURAN [Concomitant]
     Route: 048
     Dates: end: 20120307
  8. SYNTHROID [Concomitant]
     Route: 065
  9. VITAMIN B-12 [Concomitant]
     Route: 065
  10. CALCIUM CARBONATE [Concomitant]
     Route: 065

REACTIONS (5)
  - INGUINAL HERNIA [None]
  - ABDOMINAL HERNIA [None]
  - ENTEROSTOMY [None]
  - PROCEDURAL SITE REACTION [None]
  - POST PROCEDURAL INFECTION [None]
